FAERS Safety Report 8233164-2 (Version None)
Quarter: 2012Q1

REPORT INFORMATION
  Report Type: 
  Country: None (occurrence: None)
  Receive Date: 20120326
  Receipt Date: 20120320
  Transmission Date: 20120608
  Serious: Yes (Hospitalization, Other)
  Sender: FDA-Public Use
  Company Number: US-PFIZER INC-2012073212

PATIENT
  Sex: Male

DRUGS (7)
  1. LAMICTAL [Concomitant]
     Indication: AFFECTIVE DISORDER
     Dosage: 100 MG, 2X/DAY
  2. KLONOPIN [Concomitant]
     Indication: PANIC ATTACK
  3. KLONOPIN [Concomitant]
     Indication: ANXIETY
     Dosage: 2 MG, DAILY
  4. GEODON [Suspect]
     Indication: BIPOLAR DISORDER
     Dosage: 40 MG, DAILY
     Dates: start: 20110201
  5. GEODON [Suspect]
     Indication: PSYCHOTIC DISORDER
     Dosage: 60 MG IN MORNING AND 120 MG IN NIGHT
  6. TEGRETOL [Suspect]
     Indication: PSYCHOTIC DISORDER
     Dosage: 1600 MG, 1X/DAY AT NIGHT
     Dates: start: 20110301, end: 20110101
  7. LISINOPRIL [Concomitant]
     Indication: BLOOD PRESSURE ABNORMAL
     Dosage: 20 MG, DAILY

REACTIONS (8)
  - DIZZINESS [None]
  - SOMNOLENCE [None]
  - PSYCHOTIC DISORDER [None]
  - THINKING ABNORMAL [None]
  - GAIT DISTURBANCE [None]
  - VISUAL IMPAIRMENT [None]
  - SPEECH DISORDER [None]
  - HORMONE LEVEL ABNORMAL [None]
